FAERS Safety Report 16234353 (Version 1)
Quarter: 2019Q2

REPORT INFORMATION
  Report Type: Report from Study
  Country: BR (occurrence: BR)
  Receive Date: 20190424
  Receipt Date: 20190424
  Transmission Date: 20190711
  Serious: Yes (Other)
  Sender: FDA-Public Use
  Company Number: PHHY2014BR013199

PATIENT
  Age: 55 Year
  Sex: Female
  Weight: 80 kg

DRUGS (3)
  1. GILENYA [Suspect]
     Active Substance: FINGOLIMOD HYDROCHLORIDE
     Dosage: 0.5 MG, (6 TIMES A WEEK, EVERY DAY EXCEPT SATURDAY)
     Route: 048
     Dates: start: 20131004
  2. GILENYA [Suspect]
     Active Substance: FINGOLIMOD HYDROCHLORIDE
     Dosage: UNK, QD
     Route: 048
     Dates: start: 2014
  3. GILENYA [Suspect]
     Active Substance: FINGOLIMOD HYDROCHLORIDE
     Indication: MULTIPLE SCLEROSIS
     Dosage: UNK
     Route: 065
     Dates: start: 2013, end: 2013

REACTIONS (21)
  - Depressed mood [Unknown]
  - Fatigue [Not Recovered/Not Resolved]
  - Gait disturbance [Not Recovered/Not Resolved]
  - Irritability [Recovering/Resolving]
  - Feeling abnormal [Recovering/Resolving]
  - Decreased immune responsiveness [Recovering/Resolving]
  - Neuralgia [Recovered/Resolved]
  - Herpes zoster [Not Recovered/Not Resolved]
  - Inappropriate schedule of product administration [Unknown]
  - Extremity contracture [Not Recovered/Not Resolved]
  - Stress [Recovering/Resolving]
  - Menopause [Unknown]
  - Alopecia [Recovering/Resolving]
  - Insomnia [Recovering/Resolving]
  - Pain in extremity [Recovered/Resolved]
  - Toothache [Recovered/Resolved]
  - Pericardial effusion [Not Recovered/Not Resolved]
  - Multiple sclerosis relapse [Unknown]
  - Sensitivity to weather change [Unknown]
  - Decreased activity [Recovering/Resolving]
  - Anxiety [Recovering/Resolving]

NARRATIVE: CASE EVENT DATE: 201510
